FAERS Safety Report 7176826-0 (Version None)
Quarter: 2011Q1

REPORT INFORMATION
  Report Type: 
  Country: None (occurrence: None)
  Receive Date: 20101207
  Receipt Date: 20101122
  Transmission Date: 20110831
  Serious: Yes (Hospitalization, Other)
  Sender: FDA-Public Use
  Company Number: ACO_20559_2010

PATIENT
  Age: 70 Year
  Sex: Female
  Weight: 46.3 kg

DRUGS (10)
  1. MULTIVITAMIN /00831701/ (VITAMINS NOS) [Concomitant]
  2. ATENOLOL [Concomitant]
  3. SERTRALINE HYDROCHLORIDE [Concomitant]
  4. ERGOCALCIFEROL [Concomitant]
  5. AMPYRA [Suspect]
     Indication: GAIT DISTURBANCE
     Dosage: 10 MG, BID, ORAL ; 10 MG, BID, ORAL
     Route: 048
     Dates: start: 20101116, end: 20101116
  6. AMPYRA [Suspect]
     Indication: GAIT DISTURBANCE
     Dosage: 10 MG, BID, ORAL ; 10 MG, BID, ORAL
     Route: 048
     Dates: start: 20100927, end: 20100928
  7. AMANTADINE HCL [Concomitant]
  8. OMEPRAZOLE [Concomitant]
  9. LEVOTHYROXINE SODIUM [Concomitant]
  10. CELLCEPT [Concomitant]

REACTIONS (6)
  - DIARRHOEA [None]
  - LIP INJURY [None]
  - TREMOR [None]
  - NAUSEA [None]
  - CONVULSION [None]
  - FEELING ABNORMAL [None]
